FAERS Safety Report 11086313 (Version 2)
Quarter: 2015Q2

REPORT INFORMATION
  Report Type: Spontaneous
  Country: FR (occurrence: FR)
  Receive Date: 20150504
  Receipt Date: 20150515
  Transmission Date: 20150821
  Serious: Yes (Death, Hospitalization)
  Sender: FDA-Public Use
  Company Number: FR-SUN PHARMACEUTICAL INDUSTRIES LTD-2015RR-96457

PATIENT
  Age: 31 Year
  Sex: Male

DRUGS (5)
  1. HYDROXYZINE [Concomitant]
     Active Substance: HYDROXYZINE\HYDROXYZINE HYDROCHLORIDE
     Indication: PRODUCT USED FOR UNKNOWN INDICATION
     Dosage: UNK
     Route: 065
  2. TRAMADOL [Suspect]
     Active Substance: TRAMADOL
     Indication: PRODUCT USED FOR UNKNOWN INDICATION
     Dosage: UNK
     Route: 065
  3. ACETAMINOPHEN. [Concomitant]
     Active Substance: ACETAMINOPHEN
     Indication: PRODUCT USED FOR UNKNOWN INDICATION
     Dosage: UNK
     Route: 065
  4. COCAINE [Interacting]
     Active Substance: COCAINE
     Indication: PRODUCT USED FOR UNKNOWN INDICATION
     Dosage: UNK
     Route: 065
  5. LIDOCAIN [Concomitant]
     Active Substance: LIDOCAINE
     Indication: PRODUCT USED FOR UNKNOWN INDICATION
     Dosage: UNK
     Route: 065

REACTIONS (13)
  - Adrenergic syndrome [Unknown]
  - Haemodynamic instability [Unknown]
  - Toxicity to various agents [Fatal]
  - Overdose [Fatal]
  - Potentiating drug interaction [Fatal]
  - Hyperthermia [Unknown]
  - Generalised tonic-clonic seizure [Unknown]
  - Acute kidney injury [Unknown]
  - Cardio-respiratory arrest [Unknown]
  - Hypokalaemia [Unknown]
  - Serotonin syndrome [Unknown]
  - Acidosis [Unknown]
  - Rhabdomyolysis [Unknown]
